FAERS Safety Report 23900842 (Version 1)
Quarter: 2024Q2

REPORT INFORMATION
  Report Type: Spontaneous
  Country: US (occurrence: None)
  Receive Date: 20240526
  Receipt Date: 20240526
  Transmission Date: 20240716
  Serious: No
  Sender: FDA-Public Use
  Company Number: US-ROCHE-3362000

PATIENT
  Sex: Female
  Weight: 64.468 kg

DRUGS (4)
  1. OCREVUS [Suspect]
     Active Substance: OCRELIZUMAB
     Indication: Multiple sclerosis
     Dosage: ONGOING: YES
     Route: 042
     Dates: start: 2017
  2. COPAXONE [Concomitant]
     Active Substance: GLATIRAMER ACETATE
  3. BETASERON [Concomitant]
     Active Substance: INTERFERON BETA-1B
  4. TYSABRI [Concomitant]
     Active Substance: NATALIZUMAB

REACTIONS (5)
  - Hepatic enzyme increased [Not Recovered/Not Resolved]
  - Fall [Unknown]
  - Multiple sclerosis [Not Recovered/Not Resolved]
  - Headache [Not Recovered/Not Resolved]
  - Insomnia [Recovered/Resolved]

NARRATIVE: CASE EVENT DATE: 20220101
